FAERS Safety Report 5515888-0 (Version None)
Quarter: 2007Q4

REPORT INFORMATION
  Report Type: 
  Country: None (occurrence: None)
  Receive Date: 20071114
  Receipt Date: 20071108
  Transmission Date: 20080405
  Serious: Yes (Other)
  Sender: FDA-Public Use
  Company Number: CA-ASTRAZENECA-2007UW26033

PATIENT
  Age: 68 Year
  Sex: Female

DRUGS (15)
  1. XYLOCAINE [Suspect]
     Route: 047
  2. DORC VISION BLUE [Suspect]
  3. FLURBIPROFEN [Suspect]
  4. KETOROLAC [Suspect]
  5. LIGNOCAINE [Suspect]
  6. MIOCHOL [Suspect]
  7. PHENYLEPHRINE HCL OPTH 2.5% [Suspect]
  8. PILOCARPINE [Suspect]
  9. PREDNISOLONE [Suspect]
  10. PROVIODINE [Suspect]
  11. TETRACAINE [Suspect]
  12. TROPICAMIDE [Suspect]
  13. VANCOMYCIN [Suspect]
  14. ZYMAR [Suspect]
  15. PEPCID [Concomitant]

REACTIONS (2)
  - EYE DISORDER [None]
  - INFLAMMATION [None]
